FAERS Safety Report 6120917-X (Version None)
Quarter: 2009Q1

REPORT INFORMATION
  Report Type: 
  Country: None (occurrence: None)
  Receive Date: 20090312
  Receipt Date: 20090305
  Transmission Date: 20090719
  Serious: Yes (Hospitalization)
  Sender: FDA-Public Use
  Company Number: PAR_02842_2009

PATIENT
  Sex: Male
  Weight: 78 kg

DRUGS (1)
  1. MESALAMINE [Suspect]
     Indication: COLITIS ULCERATIVE
     Dosage: 2 DF QD ORAL
     Route: 048
     Dates: start: 20090127, end: 20090206

REACTIONS (12)
  - ANAEMIA [None]
  - BAND NEUTROPHIL COUNT INCREASED [None]
  - BLOOD CALCIUM DECREASED [None]
  - BLOOD CHLORIDE DECREASED [None]
  - BLOOD GLUCOSE INCREASED [None]
  - BLOOD LACTIC ACID INCREASED [None]
  - BLOOD SODIUM DECREASED [None]
  - FEELING ABNORMAL [None]
  - HAIR METAL TEST ABNORMAL [None]
  - LYMPHOCYTE COUNT DECREASED [None]
  - OXYGEN SATURATION DECREASED [None]
  - PLATELET COUNT INCREASED [None]
